FAERS Safety Report 6738345-2 (Version None)
Quarter: 2010Q2

REPORT INFORMATION
  Report Type: 
  Country: None (occurrence: None)
  Receive Date: 20100524
  Receipt Date: 20100517
  Transmission Date: 20101027
  Serious: Yes (Other)
  Sender: FDA-Public Use
  Company Number: JP-WYE-H15213310

PATIENT
  Age: 21 Year
  Sex: Female

DRUGS (1)
  1. ZOSYN [Suspect]
     Indication: PYELONEPHRITIS
     Route: 041
     Dates: start: 20100517, end: 20100517

REACTIONS (3)
  - ANAPHYLACTOID REACTION [None]
  - COUGH [None]
  - OROPHARYNGEAL PAIN [None]
